FAERS Safety Report 5822887-8 (Version None)
Quarter: 2008Q3

REPORT INFORMATION
  Report Type: 
  Country: None (occurrence: None)
  Receive Date: 20080724
  Receipt Date: 20080724
  Transmission Date: 20090109
  Serious: No
  Sender: FDA-Public Use
  Company Number: None

PATIENT
  Age: 64 Year
  Sex: Female
  Weight: 62.5964 kg

DRUGS (1)
  1. MINOCYCLINE HCL [Suspect]
     Indication: INFLAMMATION
     Dosage: 50MG 1 CAP DAILY ORAL
     Route: 048
     Dates: start: 20080315, end: 20080320

REACTIONS (1)
  - DRUG INEFFECTIVE [None]
